FAERS Safety Report 10432834 (Version 1)
Quarter: 2014Q3

REPORT INFORMATION
  Report Type: Spontaneous
  Country: US (occurrence: None)
  Receive Date: 20140904
  Receipt Date: 20140904
  Transmission Date: 20150326
  Serious: No
  Sender: FDA-Public Use
  Company Number: None

PATIENT
  Age: 52 Year
  Sex: Male
  Weight: 82.1 kg

DRUGS (1)
  1. ATORVASTATIN 10MG RANBAXY [Suspect]
     Active Substance: ATORVASTATIN
     Indication: HYPERLIPIDAEMIA
     Route: 048
     Dates: start: 20140617, end: 20140804

REACTIONS (2)
  - Amnesia [None]
  - Product substitution issue [None]

NARRATIVE: CASE EVENT DATE: 20140617
